FAERS Safety Report 4894517-3 (Version None)
Quarter: 2006Q1

REPORT INFORMATION
  Report Type: 
  Country: None (occurrence: None)
  Receive Date: 20060127
  Receipt Date: 20060118
  Transmission Date: 20060701
  Serious: Yes (Hospitalization)
  Sender: FDA-Public Use
  Company Number: US-ABBOTT-06P-163-0322724-00

PATIENT
  Age: 25 Year
  Sex: Female

DRUGS (5)
  1. KALETRA [Suspect]
     Indication: DRUG USE FOR UNKNOWN INDICATION
     Route: 048
     Dates: start: 20060109, end: 20060114
  2. LAMIVUDINE AND STAVUDINE [Suspect]
     Indication: DRUG USE FOR UNKNOWN INDICATION
     Route: 048
     Dates: start: 20050929
  3. LAMIVUDINE AND STAVUDINE [Suspect]
     Route: 048
     Dates: start: 20060109, end: 20060114
  4. NELFINAVIR MESILATE [Suspect]
     Indication: DRUG USE FOR UNKNOWN INDICATION
     Route: 048
     Dates: start: 20050929
  5. VIREAD [Suspect]
     Indication: DRUG USE FOR UNKNOWN INDICATION
     Route: 048
     Dates: start: 20060109, end: 20060114

REACTIONS (8)
  - ANTIPHOSPHOLIPID SYNDROME [None]
  - DRUG EXPOSURE BEFORE PREGNANCY [None]
  - ECLAMPSIA [None]
  - GINGIVAL BLEEDING [None]
  - METABOLIC DISORDER [None]
  - PLATELET COUNT DECREASED [None]
  - PREGNANCY INDUCED HYPERTENSION [None]
  - STILLBIRTH [None]
